FAERS Safety Report 19704497 (Version 1)
Quarter: 2021Q3

REPORT INFORMATION
  Report Type: Spontaneous
  Country: US (occurrence: US)
  Receive Date: 20210813
  Receipt Date: 20210813
  Transmission Date: 20211014
  Serious: Yes (Life-Threatening, Hospitalization)
  Sender: FDA-Public Use
  Company Number: None

PATIENT
  Age: 39 Year
  Sex: Female
  Weight: 47.63 kg

DRUGS (1)
  1. CARBAMAZEPINE SUSP [Suspect]
     Active Substance: CARBAMAZEPINE
     Indication: SEIZURE
     Dosage: ?          OTHER FREQUENCY:Q8H;?
     Route: 048
     Dates: start: 1996

REACTIONS (4)
  - Pyrexia [None]
  - Urosepsis [None]
  - Drug ineffective [None]
  - Product substitution issue [None]

NARRATIVE: CASE EVENT DATE: 20140415
